FAERS Safety Report 9289377 (Version 8)
Quarter: 2016Q1

REPORT INFORMATION
  Report Type: Report from Study
  Country: US (occurrence: US)
  Receive Date: 20130514
  Receipt Date: 20160316
  Transmission Date: 20160526
  Serious: No
  Sender: FDA-Public Use
  Company Number: US-VERTEX PHARMACEUTICALS INC-2013-006032

PATIENT
  Age: 48 Year
  Sex: Female
  Weight: 71 kg

DRUGS (12)
  1. KALYDECO [Suspect]
     Active Substance: IVACAFTOR
     Dosage: UNK
     Route: 048
  2. PANCRELIPASE. [Suspect]
     Active Substance: PANCRELIPASE
     Indication: MUCOUS STOOLS
  3. ROBITUSSIN (GUAIFENESIN) [Concomitant]
     Active Substance: GUAIFENESIN
     Indication: COUGH
  4. SPIRIVA [Concomitant]
     Active Substance: TIOTROPIUM BROMIDE MONOHYDRATE
     Indication: CYSTIC FIBROSIS
     Dosage: UNK
  5. PROAIR HFA [Concomitant]
     Active Substance: ALBUTEROL SULFATE
     Dosage: 90 MCG/ACTUATION INHL HFAA, QID
  6. PANCRELIPASE. [Suspect]
     Active Substance: PANCRELIPASE
     Indication: CYSTIC FIBROSIS
     Dosage: 3 DF, TID
     Route: 048
  7. KALYDECO [Suspect]
     Active Substance: IVACAFTOR
     Dosage: 150 MG, QD
     Route: 048
     Dates: start: 20131001
  8. ALBUTEROL. [Concomitant]
     Active Substance: ALBUTEROL
     Indication: CYSTIC FIBROSIS
     Dosage: 2.5 MG/3 ML (0.083%) INHL NEB SOLN
     Route: 055
  9. PULMOZYME [Concomitant]
     Active Substance: DORNASE ALFA
     Indication: CYSTIC FIBROSIS
     Dosage: 1 MG/ML INHL SOLN
     Route: 055
  10. PANCRELIPASE. [Suspect]
     Active Substance: PANCRELIPASE
     Indication: FAECAL ELASTASE CONCENTRATION ABNORMAL
  11. KALYDECO [Suspect]
     Active Substance: IVACAFTOR
     Indication: CYSTIC FIBROSIS
     Dosage: 150 MG, BID
     Route: 048
     Dates: start: 20130204, end: 20130801
  12. ADVIL [Concomitant]
     Active Substance: IBUPROFEN
     Dosage: UNK, QD
     Route: 048
     Dates: end: 20130108

REACTIONS (10)
  - Liver function test increased [Not Recovered/Not Resolved]
  - Cough [Unknown]
  - Transaminases increased [Recovered/Resolved]
  - Headache [Recovering/Resolving]
  - Incorrect dose administered [Unknown]
  - Nausea [Recovered/Resolved]
  - Abdominal pain [Unknown]
  - Abdominal pain upper [Unknown]
  - Syncope [Unknown]
  - Fatigue [Unknown]

NARRATIVE: CASE EVENT DATE: 20130204
